FAERS Safety Report 5950621-X (Version None)
Quarter: 2008Q4

REPORT INFORMATION
  Report Type: 
  Country: None (occurrence: None)
  Receive Date: 20081112
  Receipt Date: 20081104
  Transmission Date: 20090506
  Serious: Yes (Hospitalization)
  Sender: FDA-Public Use
  Company Number: FR-JNJFOC-20080904731

PATIENT
  Sex: Male
  Weight: 75 kg

DRUGS (10)
  1. RISPERDAL [Suspect]
     Route: 048
  2. RISPERDAL [Suspect]
     Route: 048
  3. RISPERDAL [Suspect]
     Indication: BIPOLAR I DISORDER
     Route: 048
  4. ZYLORIC [Concomitant]
     Indication: HYPERURICAEMIA
     Route: 048
     Dates: end: 20080828
  5. KARDEGIC [Concomitant]
     Route: 048
  6. TRANSIPEG [Concomitant]
     Indication: CONSTIPATION
     Route: 048
  7. ATARAX [Concomitant]
     Indication: ANXIETY
     Route: 048
  8. DEPAKOTE [Concomitant]
     Indication: BIPOLAR I DISORDER
  9. LEVOTHYROX [Concomitant]
     Route: 065
  10. LEPTICUR [Concomitant]
     Route: 048
     Dates: end: 20080919

REACTIONS (3)
  - LEUKOPENIA [None]
  - LYMPHADENOPATHY [None]
  - NEUTROPENIA [None]
